FAERS Safety Report 8929994 (Version 1)
Quarter: 2012Q4

REPORT INFORMATION
  Report Type: 
  Country: JP (occurrence: JP)
  Receive Date: 20121128
  Receipt Date: 20121128
  Transmission Date: 20130627
  Serious: Yes (Life-Threatening, Other)
  Sender: FDA-Public Use
  Company Number: PHHY2012JP107727

PATIENT
  Age: 39 Year
  Sex: Female
  Weight: 52 kg

DRUGS (3)
  1. ROPIVACAINE [Suspect]
     Dosage: 20 ml, UNK
     Route: 008
  2. PREDNISOLONE SANDOZ [Suspect]
     Dosage: 12 mg, QOD
  3. ACETYLSALICYLIC ACID [Suspect]
     Dosage: 81 mg, UNK

REACTIONS (7)
  - Cardiac arrest [Recovered/Resolved]
  - Convulsion [Recovered/Resolved]
  - Chest discomfort [Recovered/Resolved]
  - Pulse absent [Recovered/Resolved]
  - Ventricular tachycardia [Recovered/Resolved]
  - Maternal exposure during pregnancy [Unknown]
  - Toxicity to various agents [None]
